FAERS Safety Report 5991692-4 (Version None)
Quarter: 2008Q4

REPORT INFORMATION
  Report Type: 
  Country: None (occurrence: None)
  Receive Date: 20081211
  Receipt Date: 20080505
  Transmission Date: 20090506
  Serious: No
  Sender: FDA-Public Use
  Company Number: US-AMGEN-KDL273951

PATIENT
  Sex: Female
  Weight: 67.2 kg

DRUGS (6)
  1. ENBREL [Suspect]
     Indication: PSORIATIC ARTHROPATHY
     Route: 058
     Dates: start: 20071228, end: 20080201
  2. AMBIEN [Concomitant]
  3. HYDROCODONE BITARTRATE [Concomitant]
  4. PREDNISONE TAB [Concomitant]
  5. ZYRTEC [Concomitant]
  6. LORAZEPAM [Concomitant]

REACTIONS (1)
  - CLOSTRIDIUM DIFFICILE COLITIS [None]
